FAERS Safety Report 10448277 (Version 1)
Quarter: 2014Q3

REPORT INFORMATION
  Report Type: Report from Study
  Country: BR (occurrence: BR)
  Receive Date: 20140911
  Receipt Date: 20140911
  Transmission Date: 20150326
  Serious: Yes (Hospitalization, Other)
  Sender: FDA-Public Use
  Company Number: PHHY2014BR117512

PATIENT
  Age: 91 Year
  Sex: Female
  Weight: 34.5 kg

DRUGS (4)
  1. CONCOR [Concomitant]
     Active Substance: BISOPROLOL FUMARATE
     Indication: CARDIAC DISORDER
     Dosage: UNK (1.25 AND 2.5)
     Dates: start: 2012
  2. EXELON PATCH [Suspect]
     Active Substance: RIVASTIGMINE
     Indication: PROPHYLAXIS
     Dosage: 4.6 MG, DAILY
     Route: 062
     Dates: start: 2009
  3. EXELON PATCH [Suspect]
     Active Substance: RIVASTIGMINE
     Dosage: 9.5 MG, DAILY (10 CM2)
     Route: 062
  4. EXELON PATCH [Suspect]
     Active Substance: RIVASTIGMINE
     Dosage: 4.6 MG, DAILY
     Route: 062

REACTIONS (6)
  - Cerebrovascular accident [Recovered/Resolved]
  - Infection [Recovered/Resolved]
  - Somnolence [Recovered/Resolved]
  - Dyspnoea [Recovered/Resolved]
  - Infarction [Recovered/Resolved]
  - Urinary tract infection [Recovered/Resolved]

NARRATIVE: CASE EVENT DATE: 201205
